FAERS Safety Report 15731667 (Version 1)
Quarter: 2018Q4

REPORT INFORMATION
  Report Type: Spontaneous
  Country: US (occurrence: US)
  Receive Date: 20181217
  Receipt Date: 20181217
  Transmission Date: 20190205
  Serious: Yes (Other)
  Sender: FDA-Public Use
  Company Number: None

PATIENT
  Age: 64 Year
  Sex: Female
  Weight: 89.2 kg

DRUGS (1)
  1. DESMOPRESSION [Suspect]
     Active Substance: DESMOPRESSIN
     Dosage: ?          OTHER FREQUENCY:ONCE;?

REACTIONS (4)
  - Infusion related reaction [None]
  - Flushing [None]
  - Feeling hot [None]
  - Erythema [None]

NARRATIVE: CASE EVENT DATE: 20181204
